FAERS Safety Report 25493800 (Version 1)
Quarter: 2025Q2

REPORT INFORMATION
  Report Type: Spontaneous
  Country: US (occurrence: None)
  Receive Date: 20250627
  Receipt Date: 20250627
  Transmission Date: 20250716
  Serious: Yes (Hospitalization)
  Sender: FDA-CTU
  Company Number: None

PATIENT
  Age: 75 Year
  Sex: Female
  Weight: 75.15 kg

DRUGS (22)
  1. TALTZ [Suspect]
     Active Substance: IXEKIZUMAB
     Indication: Psoriasis
     Dosage: FREQUENCY : MONTHLY;?
     Route: 058
     Dates: start: 20231201, end: 20250623
  2. VITAMIN B6 (PYRIDOXINE 25MG) TABS [Concomitant]
  3. POTASSIUM CHLORIDE 20MEQ ER TABLETS [Concomitant]
  4. LEVETIRACETAM [Concomitant]
     Active Substance: LEVETIRACETAM
  5. BELBUCA [Concomitant]
     Active Substance: BUPRENORPHINE HYDROCHLORIDE
  6. ACETAMINOPHEN\HYDROCODONE [Concomitant]
     Active Substance: ACETAMINOPHEN\HYDROCODONE
  7. ALBUTEROL HFA INH (200 PUFFS)8.5GM [Concomitant]
  8. ATORVASTATIN 80MG TABLETS [Concomitant]
  9. BUPROPION [Concomitant]
     Active Substance: BUPROPION
  10. CITRACAL CAL PLUS VIT D MAX TABS [Concomitant]
  11. CLOBETASOL PROP 0.05% SOL 50ML [Concomitant]
  12. DOCUSATE SOD 100MG CAPSULES [Concomitant]
  13. FLONASE 50MCG NAS SPRAY RX (120SPR) [Concomitant]
  14. JARDIANCE [Concomitant]
     Active Substance: EMPAGLIFLOZIN
  15. JUBLIA 10% TOPICAL NAIL SOL 4ML [Concomitant]
  16. LINZESS [Concomitant]
     Active Substance: LINACLOTIDE
  17. LISINOPRIL [Concomitant]
     Active Substance: LISINOPRIL
  18. MELOXICAM [Concomitant]
     Active Substance: MELOXICAM
  19. VITAMIN B-12 1000MCG CR TABLETS [Concomitant]
  20. VITAMIN D3 1,000UNIT CAPSULES [Concomitant]
  21. METOPROLOL SUCCINATE [Concomitant]
     Active Substance: METOPROLOL SUCCINATE
  22. OMEPRAZOLE [Concomitant]
     Active Substance: OMEPRAZOLE

REACTIONS (2)
  - Rash [None]
  - Therapy interrupted [None]

NARRATIVE: CASE EVENT DATE: 20250627
